FAERS Safety Report 7829185-1 (Version None)
Quarter: 2011Q4

REPORT INFORMATION
  Report Type: 
  Country: None (occurrence: None)
  Receive Date: 20111020
  Receipt Date: 20111014
  Transmission Date: 20120403
  Serious: Yes (Hospitalization)
  Sender: FDA-Public Use
  Company Number: PHHY2011JP91837

PATIENT
  Sex: Male

DRUGS (15)
  1. AMARYL [Concomitant]
     Dosage: 0.5 MG, UNK
     Route: 048
  2. LASIX [Concomitant]
     Dosage: 80 MG, UNK
     Route: 048
  3. UREPEARL [Concomitant]
     Indication: PROPHYLAXIS
  4. AFINITOR [Suspect]
     Dosage: 5 MG, DAILY
     Route: 048
     Dates: start: 20110707, end: 20110720
  5. AFINITOR [Suspect]
     Dosage: 5 MG
     Route: 048
     Dates: start: 20110808
  6. AFINITOR [Suspect]
     Indication: METASTATIC RENAL CELL CARCINOMA
     Dosage: 10 MG, DAILY
     Route: 048
     Dates: start: 20110609, end: 20110620
  7. SUNITINIB MALATE [Concomitant]
     Indication: METASTATIC RENAL CELL CARCINOMA
     Dosage: 25 MG, UNK
     Route: 048
     Dates: start: 20091029, end: 20110527
  8. LIVALO KOWA [Concomitant]
     Dosage: 1 MG, UNK
     Route: 048
  9. ATELEC [Concomitant]
     Dosage: 20 MG, UNK
     Route: 048
  10. AZUNOL [Concomitant]
     Indication: PROPHYLAXIS
  11. INTERFERON ALFA [Concomitant]
     Indication: METASTATIC RENAL CELL CARCINOMA
     Dates: start: 20090210, end: 20090525
  12. ASPIRIN [Concomitant]
     Dosage: 100 MG, UNK
     Route: 048
  13. MICARDIS [Concomitant]
     Dosage: 80 MG, UNK
     Route: 048
  14. SUMIFERON [Concomitant]
     Indication: METASTATIC RENAL CELL CARCINOMA
     Dates: start: 20080305, end: 20080724
  15. SORAFENIB TOSILATE [Concomitant]
     Indication: METASTATIC RENAL CELL CARCINOMA
     Dosage: 800 MG, UNK
     Route: 048
     Dates: start: 20090610, end: 20091014

REACTIONS (3)
  - PNEUMONIA BACTERIAL [None]
  - HERPES ZOSTER [None]
  - BONE MARROW FAILURE [None]
